FAERS Safety Report 8196410-X (Version None)
Quarter: 2012Q1

REPORT INFORMATION
  Report Type: 
  Country: None (occurrence: None)
  Receive Date: 20120309
  Receipt Date: 20120229
  Transmission Date: 20120608
  Serious: Yes (Other)
  Sender: FDA-Public Use
  Company Number: DE-B.I. PHARMACEUTICALS,INC./RIDGEFIELD-2012-DE-00423DE

PATIENT
  Sex: Female
  Weight: 82 kg

DRUGS (16)
  1. PRADAXA [Suspect]
     Dates: start: 20111212
  2. PRADAXA [Suspect]
     Dosage: 150 MG
  3. FERROUS SULFATE TAB [Concomitant]
  4. BISOPROLOL AL [Concomitant]
     Dosage: 5 MG
  5. OMEPRAZOL AL [Concomitant]
     Dosage: 40 MG
  6. TRIAMTEREN/HCL AL [Concomitant]
  7. DIGITOXIN TAB [Concomitant]
     Dosage: 0.07 NR
  8. PRADAXA [Suspect]
     Indication: ATRIAL FIBRILLATION
     Dosage: 300 MG
  9. SIMBAV. [Concomitant]
  10. SIMVA [Concomitant]
     Dosage: 20 MG
  11. AMLODIPIN MALEAT [Concomitant]
     Dosage: 2.5 MG
  12. HYDROCHLOROTHIAZIDE [Concomitant]
  13. FUROSEMID RATIOPHARM [Concomitant]
     Dosage: 30 MG
  14. LASIC [Concomitant]
  15. LOSARTAN KALIUM [Concomitant]
     Dosage: 50 MG
  16. FOLSAN [Concomitant]
     Dosage: 5 MG

REACTIONS (1)
  - THROMBOCYTOPENIA [None]
